FAERS Safety Report 8342054-6 (Version None)
Quarter: 2012Q2

REPORT INFORMATION
  Report Type: 
  Country: None (occurrence: None)
  Receive Date: 20120507
  Receipt Date: 20120427
  Transmission Date: 20120825
  Serious: Yes (Other)
  Sender: FDA-Public Use
  Company Number: FR-ROCHE-1065446

PATIENT
  Sex: Male

DRUGS (1)
  1. XOLAIR [Suspect]
     Indication: PRODUCT USED FOR UNKNOWN INDICATION
     Dates: start: 19981101

REACTIONS (4)
  - PSEUDOMONAS INFECTION [None]
  - CONDITION AGGRAVATED [None]
  - PYREXIA [None]
  - ASPERGILLOSIS [None]
